FAERS Safety Report 14734397 (Version 1)
Quarter: 2018Q2

REPORT INFORMATION
  Report Type: Report from Study
  Country: US (occurrence: US)
  Receive Date: 20180409
  Receipt Date: 20180409
  Transmission Date: 20180711
  Serious: Yes (Other)
  Sender: FDA-Public Use
  Company Number: US-BAYER-2018-063653

PATIENT
  Age: 75 Year
  Sex: Female

DRUGS (2)
  1. STIVARGA [Suspect]
     Active Substance: REGORAFENIB
     Indication: CONNECTIVE TISSUE NEOPLASM
     Dosage: 40 MG, BID WITH FOOD FOR 21 DAYS ON AND 7 DAYS OFF
     Route: 048
     Dates: start: 20180221, end: 201803
  2. STIVARGA [Suspect]
     Active Substance: REGORAFENIB
     Indication: SOFT TISSUE SARCOMA
     Dosage: 40 MG, QOD
     Route: 048
     Dates: start: 20180331

REACTIONS (10)
  - General physical health deterioration [Recovered/Resolved]
  - Lip disorder [Recovered/Resolved]
  - Gastrointestinal sounds abnormal [Recovered/Resolved]
  - Emergency care [None]
  - Vomiting [Recovered/Resolved]
  - Skin disorder [None]
  - Onychoclasis [None]
  - Off label use [None]
  - Drug intolerance [None]
  - Product use in unapproved indication [None]

NARRATIVE: CASE EVENT DATE: 2018
